FAERS Safety Report 11880681 (Version 1)
Quarter: 2015Q4

REPORT INFORMATION
  Report Type: Spontaneous
  Country: IT (occurrence: IT)
  Receive Date: 20151230
  Receipt Date: 20151230
  Transmission Date: 20160305
  Serious: Yes (Other)
  Sender: FDA-Public Use
  Company Number: IT-ASTRAZENECA-2015SF30583

PATIENT
  Age: 19615 Day
  Sex: Male

DRUGS (5)
  1. BRILIQUE [Suspect]
     Active Substance: TICAGRELOR
     Indication: CARDIAC DISORDER
     Route: 048
     Dates: start: 20150301, end: 20151018
  2. CARDIOASPIRIN [Suspect]
     Active Substance: ASPIRIN
     Indication: CARDIAC DISORDER
     Dosage: 100 MG GASTRO-RESISTANT TABLETS, 1 DF DAILY
     Route: 048
     Dates: start: 20150301, end: 20151018
  3. ASACOL [Concomitant]
     Active Substance: MESALAMINE
     Dosage: 800 MG GASTRO-RESISTANT TABLETS
     Route: 048
  4. ANTRA [Concomitant]
     Active Substance: OMEPRAZOLE
     Dosage: 20 MG GASTRO-RESISTANT HARD CAPSULES
     Route: 048
  5. BISOPROLOL [Concomitant]
     Active Substance: BISOPROLOL
     Route: 048

REACTIONS (2)
  - Anaemia [Recovering/Resolving]
  - Rectal haemorrhage [Recovering/Resolving]

NARRATIVE: CASE EVENT DATE: 20151018
